FAERS Safety Report 23268460 (Version 2)
Quarter: 2024Q2

REPORT INFORMATION
  Report Type: Spontaneous
  Country: US (occurrence: US)
  Receive Date: 20231206
  Receipt Date: 20240410
  Transmission Date: 20240716
  Serious: No
  Sender: FDA-Public Use
  Company Number: US-PFM-2023-06769

PATIENT
  Sex: Female
  Weight: 10 kg

DRUGS (2)
  1. HEMANGEOL [Suspect]
     Active Substance: PROPRANOLOL HYDROCHLORIDE
     Indication: Haemangioma
     Dosage: 2.1 ML, BID (2/DAY)
     Route: 048
  2. HEMANGEOL [Suspect]
     Active Substance: PROPRANOLOL HYDROCHLORIDE
     Dosage: 3 ML
     Route: 065

REACTIONS (5)
  - Haemorrhage [Unknown]
  - Haemangioma [Unknown]
  - Condition aggravated [Unknown]
  - Sleep disorder [Unknown]
  - Irritability [Unknown]
